FAERS Safety Report 5452926-8 (Version None)
Quarter: 2007Q3

REPORT INFORMATION
  Report Type: 
  Country: None (occurrence: None)
  Receive Date: 20070914
  Receipt Date: 20070904
  Transmission Date: 20080115
  Serious: Yes (Other)
  Sender: FDA-Public Use
  Company Number: CH-JNJFOC-20070806368

PATIENT
  Sex: Female
  Weight: 50 kg

DRUGS (1)
  1. IMODIUM [Suspect]
     Indication: DIARRHOEA

REACTIONS (2)
  - INCORRECT DOSE ADMINISTERED [None]
  - PARALYSIS [None]
